FAERS Safety Report 6060792-5 (Version None)
Quarter: 2009Q1

REPORT INFORMATION
  Report Type: 
  Country: None (occurrence: None)
  Receive Date: 20090202
  Receipt Date: 20090126
  Transmission Date: 20090719
  Serious: Yes (Death)
  Sender: FDA-Public Use
  Company Number: PHHY2008JP33237

PATIENT
  Sex: Male
  Weight: 78 kg

DRUGS (11)
  1. DIOVAN [Suspect]
     Indication: HYPERTENSION
     Dosage: 80 MG, QD
     Route: 048
     Dates: start: 20071018, end: 20080629
  2. LASIX [Concomitant]
     Indication: HYPERTENSION
     Dosage: 20 MG
     Dates: start: 20080110, end: 20080629
  3. MEVALOTIN [Concomitant]
     Dosage: 10 MG
     Route: 048
     Dates: start: 20030219, end: 20060801
  4. EUGLUCON [Concomitant]
     Dosage: 5 MG
     Route: 048
     Dates: start: 20030219, end: 20060724
  5. MELBIN [Concomitant]
     Dosage: 750 MG
     Route: 048
     Dates: end: 20030219
  6. TAKEPRON [Concomitant]
     Dosage: 15 MG
     Route: 048
     Dates: start: 20060810, end: 20080629
  7. GASTROM [Concomitant]
     Dosage: 3 G
     Route: 048
     Dates: start: 20060810, end: 20080629
  8. LIPITOR [Concomitant]
     Dosage: 10 MG
     Route: 048
     Dates: start: 20060801, end: 20080629
  9. NOVOLIN R [Concomitant]
     Dosage: 76 IU
     Route: 042
     Dates: start: 20060725, end: 20080629
  10. NOVOLIN N [Concomitant]
     Dosage: 16 IU
     Route: 042
     Dates: start: 20060725, end: 20080629
  11. HOKUNALIN [Concomitant]
     Dosage: 2 MG
     Route: 062
     Dates: end: 20080629

REACTIONS (3)
  - BLOOD TRIGLYCERIDES INCREASED [None]
  - GLYCOSYLATED HAEMOGLOBIN INCREASED [None]
  - INTERSTITIAL LUNG DISEASE [None]
